FAERS Safety Report 8496067-4 (Version None)
Quarter: 2012Q3

REPORT INFORMATION
  Report Type: 
  Country: None (occurrence: None)
  Receive Date: 20120709
  Receipt Date: 20120628
  Transmission Date: 20120928
  Serious: Yes (Hospitalization)
  Sender: FDA-Public Use
  Company Number: US-ASTRAZENECA-2012SE39228

PATIENT
  Age: 44 Year
  Sex: Male
  Weight: 88 kg

DRUGS (6)
  1. ATENOLOL [Suspect]
     Route: 048
     Dates: start: 20070101
  2. CIPROFLOXACIN [Concomitant]
     Route: 048
     Dates: start: 20070101
  3. PAROXETINE [Concomitant]
     Route: 048
     Dates: start: 20070101
  4. ASPIRIN [Concomitant]
     Route: 048
     Dates: start: 20070101
  5. CRESTOR [Suspect]
     Indication: HYPERCHOLESTEROLAEMIA
     Route: 048
     Dates: start: 20110101
  6. PANTOPRAZOLE [Concomitant]
     Route: 048
     Dates: start: 20070101

REACTIONS (7)
  - TREMOR [None]
  - BLOOD CHOLESTEROL INCREASED [None]
  - MYOCARDIAL INFARCTION [None]
  - LIVER ABSCESS [None]
  - BACTERAEMIA [None]
  - SEPSIS [None]
  - URINARY TRACT INFECTION [None]
